FAERS Safety Report 5746591-X (Version None)
Quarter: 2008Q2

REPORT INFORMATION
  Report Type: 
  Country: None (occurrence: None)
  Receive Date: 20080522
  Receipt Date: 20080513
  Transmission Date: 20081010
  Serious: Yes (Hospitalization)
  Sender: FDA-Public Use
  Company Number: CA-WYE-H03012708

PATIENT
  Sex: Male
  Weight: 63.3 kg

DRUGS (18)
  1. TACROLIMUS [Suspect]
     Indication: PROPHYLAXIS AGAINST TRANSPLANT REJECTION
     Route: 048
     Dates: start: 20071203, end: 20080102
  2. TACROLIMUS [Suspect]
     Route: 048
     Dates: start: 20080103, end: 20080111
  3. TACROLIMUS [Suspect]
     Route: 048
     Dates: start: 20080112, end: 20080116
  4. TACROLIMUS [Suspect]
     Route: 048
     Dates: start: 20080117, end: 20080125
  5. TACROLIMUS [Suspect]
     Route: 048
     Dates: start: 20080126, end: 20080304
  6. TACROLIMUS [Suspect]
     Dosage: 1 MG IN AM AND 0.5 MG IN PM
     Route: 048
     Dates: start: 20080305, end: 20080305
  7. TACROLIMUS [Suspect]
     Route: 048
     Dates: start: 20080306, end: 20080306
  8. TACROLIMUS [Suspect]
     Dosage: 0.5 MG AM DOSE ONLY
     Route: 048
     Dates: start: 20080307, end: 20080307
  9. FLAGYL [Concomitant]
     Route: 065
     Dates: start: 20080127, end: 20080320
  10. VITAMIN D [Concomitant]
     Route: 048
     Dates: start: 20071213
  11. ACETYLSALICYLIC ACID SRT [Concomitant]
     Indication: ANTICOAGULANT THERAPY
     Route: 065
     Dates: start: 20080207, end: 20080303
  12. FERROUS GLUCONATE [Concomitant]
     Indication: ANAEMIA
     Route: 048
     Dates: start: 20071207
  13. PANTOPRAZOLE SODIUM [Concomitant]
     Indication: GASTROOESOPHAGEAL REFLUX DISEASE
     Route: 048
     Dates: start: 20060919
  14. SIROLIMUS [Concomitant]
     Indication: PROPHYLAXIS AGAINST TRANSPLANT REJECTION
     Route: 048
     Dates: start: 20080118, end: 20080215
  15. SIROLIMUS [Concomitant]
     Route: 048
     Dates: start: 20080216, end: 20080305
  16. SIROLIMUS [Concomitant]
     Route: 048
     Dates: start: 20080306
  17. MAGNESIUM [Concomitant]
     Indication: BLOOD MAGNESIUM DECREASED
     Route: 048
     Dates: start: 20071227
  18. VITAMIN CAP [Concomitant]
     Route: 048
     Dates: start: 20071210

REACTIONS (3)
  - ABDOMINAL PAIN [None]
  - DIARRHOEA [None]
  - RECTAL HAEMORRHAGE [None]
